FAERS Safety Report 8974810 (Version 1)
Quarter: 2012Q4

REPORT INFORMATION
  Report Type: Spontaneous
  Country: US (occurrence: None)
  Receive Date: 20121218
  Receipt Date: 20121218
  Transmission Date: 20130627
  Serious: Yes (Other)
  Sender: FDA-Public Use
  Company Number: None

PATIENT
  Sex: Female

DRUGS (1)
  1. COPAXONE [Suspect]
     Indication: MS
     Dates: start: 20110209

REACTIONS (5)
  - Flushing [None]
  - Palpitations [None]
  - Muscular weakness [None]
  - Dyspnoea [None]
  - Chills [None]
